FAERS Safety Report 22390990 (Version 1)
Quarter: 2023Q2

REPORT INFORMATION
  Report Type: Other
  Country: DE (occurrence: DE)
  Receive Date: 20230601
  Receipt Date: 20230601
  Transmission Date: 20230722
  Serious: Yes (Other)
  Sender: FDA-Public Use
  Company Number: DE-CELLTRION INC.-2023DE010883

PATIENT

DRUGS (1)
  1. TRUXIMA [Suspect]
     Active Substance: RITUXIMAB-ABBS
     Indication: Non-Hodgkin^s lymphoma
     Dosage: UNK
     Dates: start: 20210211

REACTIONS (2)
  - Syncope [Recovered/Resolved]
  - Hypotension [Recovered/Resolved]

NARRATIVE: CASE EVENT DATE: 20210211
